FAERS Safety Report 21362826 (Version 3)
Quarter: 2022Q4

REPORT INFORMATION
  Report Type: Report from Study
  Country: US (occurrence: US)
  Receive Date: 20220922
  Receipt Date: 20221224
  Transmission Date: 20230113
  Serious: No
  Sender: FDA-Public Use
  Company Number: US-NOVARTISTESTPH-NVSC2022US210860

PATIENT
  Sex: Female

DRUGS (1)
  1. KESIMPTA [Suspect]
     Active Substance: OFATUMUMAB
     Indication: Product used for unknown indication
     Dosage: 20 MG, QMO
     Route: 065

REACTIONS (6)
  - Malaise [Unknown]
  - Musculoskeletal stiffness [Unknown]
  - Device breakage [Unknown]
  - Needle issue [Unknown]
  - Product dose omission issue [Unknown]
  - Accidental exposure to product packaging [Unknown]
